FAERS Safety Report 12523031 (Version 6)
Quarter: 2019Q1

REPORT INFORMATION
  Report Type: Report from Study
  Country: JP (occurrence: JP)
  Receive Date: 20160701
  Receipt Date: 20190109
  Transmission Date: 20190417
  Serious: Yes (Other)
  Sender: FDA-Public Use
  Company Number: JP-ASTRAZENECA-2016SE70742

PATIENT
  Age: 78 Year
  Sex: Female
  Weight: 38 kg

DRUGS (3)
  1. IRESSA [Concomitant]
     Active Substance: GEFITINIB
     Indication: NON-SMALL CELL LUNG CANCER
     Route: 065
     Dates: start: 20160526
  2. TAGRISSO [Suspect]
     Active Substance: OSIMERTINIB
     Indication: NON-SMALL CELL LUNG CANCER
     Route: 048
     Dates: start: 20160604, end: 20160615
  3. TAGRISSO [Suspect]
     Active Substance: OSIMERTINIB
     Indication: NON-SMALL CELL LUNG CANCER
     Route: 048
     Dates: start: 20160616

REACTIONS (5)
  - Pyrexia [Recovered/Resolved]
  - Liver disorder [Recovered/Resolved]
  - Bone marrow failure [Recovered/Resolved]
  - Cardiac failure [Not Recovered/Not Resolved]
  - Neutrophil count decreased [Recovered/Resolved]

NARRATIVE: CASE EVENT DATE: 20160616
